FAERS Safety Report 24297573 (Version 1)
Quarter: 2024Q3

REPORT INFORMATION
  Report Type: Spontaneous
  Country: FR (occurrence: FR)
  Receive Date: 20240909
  Receipt Date: 20240909
  Transmission Date: 20241017
  Serious: Yes (Other)
  Sender: MYLAN
  Company Number: FR-MYLANLABS-2024M1077850

PATIENT
  Age: 80 Year
  Sex: Male

DRUGS (1)
  1. LYRICA [Suspect]
     Active Substance: PREGABALIN
     Indication: Spinal pain
     Dosage: 25 MILLIGRAM, UNK
     Route: 065

REACTIONS (5)
  - Hip surgery [Unknown]
  - Visual acuity reduced [Recovering/Resolving]
  - Feeling abnormal [Unknown]
  - Headache [Unknown]
  - Off label use [Unknown]
